FAERS Safety Report 8973058 (Version 1)
Quarter: 2012Q4

REPORT INFORMATION
  Report Type: 
  Country: US (occurrence: US)
  Receive Date: 20121218
  Receipt Date: 20121218
  Transmission Date: 20130627
  Serious: No
  Sender: FDA-Public Use
  Company Number: US-BRISTOL-MYERS SQUIBB COMPANY-16978272

PATIENT
  Age: 42 Year
  Sex: Male

DRUGS (2)
  1. ABILIFY [Suspect]
     Dosage: Interrupted for 3 weeks
     Dates: start: 2009
  2. SEROQUEL [Suspect]

REACTIONS (2)
  - Musculoskeletal discomfort [Unknown]
  - Muscle strain [Unknown]
